FAERS Safety Report 10870214 (Version 1)
Quarter: 2015Q1

REPORT INFORMATION
  Report Type: Spontaneous
  Country: TW (occurrence: None)
  Receive Date: 20150219
  Receipt Date: 20150219
  Transmission Date: 20150721
  Serious: Yes (Other)
  Sender: FDA-Public Use
  Company Number: BD-2015-0080

PATIENT

DRUGS (1)
  1. MORPHINE SULFATE (MORPHINE SULFATE) UNKNOWN [Suspect]
     Active Substance: MORPHINE SULFATE

REACTIONS (1)
  - Acute coronary syndrome [None]
